FAERS Safety Report 7045218-7 (Version None)
Quarter: 2010Q4

REPORT INFORMATION
  Report Type: 
  Country: None (occurrence: None)
  Receive Date: 20101014
  Receipt Date: 20100715
  Transmission Date: 20110411
  Serious: No
  Sender: FDA-Public Use
  Company Number: US-ALLERGAN-1009195US

PATIENT
  Age: 53 Year
  Sex: Female

DRUGS (3)
  1. LATISSE [Suspect]
     Indication: GROWTH OF EYELASHES
     Dosage: 1 GTT, QHS
     Route: 061
     Dates: start: 20100601, end: 20100601
  2. LATISSE [Suspect]
     Dosage: 1 GTT, QHS
     Route: 061
     Dates: start: 20100601, end: 20100601
  3. BOTOX [Concomitant]

REACTIONS (4)
  - DRUG HYPERSENSITIVITY [None]
  - EYE DISCHARGE [None]
  - EYELIDS PRURITUS [None]
  - SKIN HYPERPIGMENTATION [None]
